FAERS Safety Report 7363966-6 (Version None)
Quarter: 2011Q1

REPORT INFORMATION
  Report Type: 
  Country: None (occurrence: None)
  Receive Date: 20110321
  Receipt Date: 20110315
  Transmission Date: 20110831
  Serious: Yes (Hospitalization)
  Sender: FDA-Public Use
  Company Number: DE-ROCHE-765977

PATIENT
  Age: 68 Year
  Sex: Male

DRUGS (2)
  1. AVASTIN [Suspect]
     Dosage: ADMINISTERED TWICE. LAST ADMINISTRATION APPROXIMATELY ON 24-FEB-2011.
     Route: 042
  2. CHEMOTHERAPY [Concomitant]

REACTIONS (5)
  - AMNESIA [None]
  - PAIN [None]
  - HYPERTENSION [None]
  - ENURESIS [None]
  - DIZZINESS [None]
